FAERS Safety Report 6371728-1 (Version None)
Quarter: 2009Q3

REPORT INFORMATION
  Report Type: 
  Country: None (occurrence: None)
  Receive Date: 20090918
  Receipt Date: 20090902
  Transmission Date: 20100115
  Serious: Yes (Other)
  Sender: FDA-Public Use
  Company Number: 001451

PATIENT
  Sex: Female

DRUGS (2)
  1. NEUPRO [Suspect]
     Indication: PARKINSON'S DISEASE
     Dosage: 12 MG QD TRANSDERMAL
     Route: 062
  2. MADOPAR /00349201/ [Concomitant]

REACTIONS (1)
  - NO ADVERSE EVENT [None]
